FAERS Safety Report 8312061-8 (Version None)
Quarter: 2012Q2

REPORT INFORMATION
  Report Type: 
  Country: None (occurrence: None)
  Receive Date: 20120425
  Receipt Date: 20110520
  Transmission Date: 20120825
  Serious: Yes (Other)
  Sender: FDA-Public Use
  Company Number: US-TEVA-2011002491

PATIENT
  Sex: Female

DRUGS (5)
  1. SEROQUEL [Concomitant]
  2. EFFEXOR XR [Concomitant]
     Dosage: 300 MILLIGRAM;
  3. PROVIGIL [Suspect]
     Indication: SCHIZOAFFECTIVE DISORDER
     Route: 048
  4. GEODON [Concomitant]
  5. ATIVAN [Concomitant]

REACTIONS (2)
  - PSYCHOTIC DISORDER [None]
  - DEPRESSION [None]
